FAERS Safety Report 9734018 (Version 3)
Quarter: 2013Q4

REPORT INFORMATION
  Report Type: Spontaneous
  Country: FI (occurrence: FI)
  Receive Date: 20131205
  Receipt Date: 20131224
  Transmission Date: 20140711
  Serious: Yes (Other)
  Sender: FDA-Public Use
  Company Number: FI-009507513-1312FIN000428

PATIENT
  Age: 44 Year
  Sex: Female
  Weight: 86 kg

DRUGS (6)
  1. IMPLANON [Suspect]
     Dosage: UNK
     Route: 059
     Dates: start: 2008, end: 20131128
  2. PRIMASPAN [Concomitant]
     Indication: CARDIAC DISORDER
     Dosage: UNK
  3. SIMVASTATIN ACTAVIS [Concomitant]
     Dosage: 1X1
  4. BISOPROLOL [Concomitant]
  5. ORMOX [Concomitant]
  6. PLAVIX [Concomitant]
     Dosage: UNK
     Dates: start: 2012, end: 201305

REACTIONS (6)
  - Coronary arterial stent insertion [Unknown]
  - Acute myocardial infarction [Unknown]
  - Angioplasty [Unknown]
  - Angioplasty [Unknown]
  - Oligomenorrhoea [Unknown]
  - Incorrect drug administration duration [Unknown]
